FAERS Safety Report 8553087-9 (Version None)
Quarter: 2012Q3

REPORT INFORMATION
  Report Type: 
  Country: None (occurrence: None)
  Receive Date: 20120731
  Receipt Date: 20120719
  Transmission Date: 20120928
  Serious: Yes (Death)
  Sender: FDA-Public Use
  Company Number: TN-SANOFI-AVENTIS-2012SA051784

PATIENT
  Age: 79 Year
  Sex: Female

DRUGS (6)
  1. GLUCOPHAGE [Concomitant]
     Route: 048
     Dates: end: 20120612
  2. AMLODIPINE/VALSARTAN [Concomitant]
     Route: 048
     Dates: end: 20120612
  3. PLAVIX [Suspect]
     Route: 048
     Dates: start: 20120527, end: 20120612
  4. LESCOL [Concomitant]
     Route: 048
     Dates: end: 20120612
  5. ASPEGIC 1000 [Concomitant]
     Route: 048
     Dates: end: 20120612
  6. ALLOPURINOL [Concomitant]
     Route: 048
     Dates: end: 20120612

REACTIONS (1)
  - PNEUMONIA [None]
